FAERS Safety Report 6370951-X (Version None)
Quarter: 2009Q3

REPORT INFORMATION
  Report Type: 
  Country: None (occurrence: None)
  Receive Date: 20090923
  Receipt Date: 20070919
  Transmission Date: 20100115
  Serious: No
  Sender: FDA-Public Use
  Company Number: US-ASTRAZENECA-2006UW22585

PATIENT
  Age: 12163 Day
  Sex: Female
  Weight: 136.1 kg

DRUGS (21)
  1. SEROQUEL [Suspect]
     Indication: DEPRESSION
     Route: 048
     Dates: start: 20040101, end: 20060301
  2. SEROQUEL [Suspect]
     Indication: SLEEP DISORDER
     Route: 048
     Dates: start: 20040101, end: 20060301
  3. SEROQUEL [Suspect]
     Route: 048
     Dates: start: 20040729
  4. SEROQUEL [Suspect]
     Route: 048
     Dates: start: 20040729
  5. TRAZODONE [Concomitant]
     Route: 048
  6. LIPITOR [Concomitant]
     Dosage: 10 MG TO 20 MG
     Route: 048
  7. COLCHICINE [Concomitant]
     Indication: GOUT
     Route: 048
  8. PREDNISONE [Concomitant]
     Route: 048
  9. BEXTRA [Concomitant]
     Indication: PAIN IN EXTREMITY
     Route: 065
  10. ALBUTEROL [Concomitant]
     Indication: ASTHMA
     Dosage: 2.5 MG/ 3 ML
     Route: 055
  11. SYNTHROID [Concomitant]
     Indication: HYPOTHYROIDISM
     Dosage: 50 MG TO 200MG
     Route: 048
  12. PROCARDIA XL [Concomitant]
     Indication: HYPERTENSION
     Dosage: 30 MG TO 60 MG
     Route: 048
  13. MOTRIN [Concomitant]
     Indication: OSTEOARTHRITIS
     Route: 048
  14. HYDROCHLOROTHIAZIDE [Concomitant]
     Indication: HYPERTENSION
     Dosage: 12.5 MG - 25 MG DAILY
     Route: 048
  15. ACCUPRIL [Concomitant]
     Route: 048
  16. INDOCIN [Concomitant]
     Route: 048
  17. PULMICORT [Concomitant]
     Dosage: STRENGTH - 0.25MG/2ML
     Route: 065
  18. AEROBID [Concomitant]
     Dosage: STRENGTH - 250 MCG/ ACT , DOSE - 2 PUFFS BID
     Route: 065
  19. ZANAFLEX [Concomitant]
     Dosage: 4 MG - 12 MG DAILY
     Route: 048
  20. ALLOPURINOL [Concomitant]
     Route: 048
  21. LOPID [Concomitant]
     Route: 048

REACTIONS (27)
  - ABDOMINAL PAIN [None]
  - AFFECTIVE DISORDER [None]
  - ALLERGY TO ARTHROPOD STING [None]
  - ANXIETY DISORDER [None]
  - ASTHENIA [None]
  - BLOOD CHOLESTEROL INCREASED [None]
  - CHEST PAIN [None]
  - DEPRESSION [None]
  - DIZZINESS [None]
  - DYSMENORRHOEA [None]
  - DYSPEPSIA [None]
  - ENDOMETRIAL HYPERPLASIA [None]
  - HERNIA [None]
  - INCREASED APPETITE [None]
  - INSOMNIA [None]
  - MENOMETRORRHAGIA [None]
  - MENSTRUATION IRREGULAR [None]
  - MIGRAINE [None]
  - MUSCLE SPASMS [None]
  - NIGHT SWEATS [None]
  - OBESITY [None]
  - OEDEMA PERIPHERAL [None]
  - OROPHARYNGEAL PAIN [None]
  - PAIN IN EXTREMITY [None]
  - POST-TRAUMATIC STRESS DISORDER [None]
  - SLEEP APNOEA SYNDROME [None]
  - TYPE 2 DIABETES MELLITUS [None]
